FAERS Safety Report 25955226 (Version 1)
Quarter: 2025Q4

REPORT INFORMATION
  Report Type: Spontaneous
  Country: US (occurrence: US)
  Receive Date: 20251024
  Receipt Date: 20251024
  Transmission Date: 20260118
  Serious: No
  Sender: KARYOPHARM THERAPEUTICS
  Company Number: US-KARYOPHARM-2025KPT100849

PATIENT

DRUGS (11)
  1. SELINEXOR [Suspect]
     Active Substance: SELINEXOR
     Indication: Plasma cell myeloma
     Dosage: 80 MG WEEKLY
     Route: 048
     Dates: start: 20251016
  2. CLOPIDOGREL [Concomitant]
     Active Substance: CLOPIDOGREL BISULFATE
  3. EZETIMIBE [Concomitant]
     Active Substance: EZETIMIBE
  4. MONTELUKAST [Concomitant]
     Active Substance: MONTELUKAST
  5. NITROGLYCERIN [Concomitant]
     Active Substance: NITROGLYCERIN
  6. OMEPRAZOLE [Concomitant]
     Active Substance: OMEPRAZOLE
  7. RANOLAZINE [Concomitant]
     Active Substance: RANOLAZINE
  8. ROSUVASTATIN [Concomitant]
     Active Substance: ROSUVASTATIN
  9. ASPIRIN [Concomitant]
     Active Substance: ASPIRIN
  10. POMALYST [Concomitant]
     Active Substance: POMALIDOMIDE
  11. OLANZAPINE [Concomitant]
     Active Substance: OLANZAPINE

REACTIONS (3)
  - Fall [Unknown]
  - Gait inability [Unknown]
  - Headache [Unknown]

NARRATIVE: CASE EVENT DATE: 20251017
